FAERS Safety Report 10353315 (Version 5)
Quarter: 2018Q4

REPORT INFORMATION
  Report Type: Report from Study
  Country: BR (occurrence: BR)
  Receive Date: 20140731
  Receipt Date: 20181012
  Transmission Date: 20190204
  Serious: Yes (Hospitalization)
  Sender: FDA-Public Use
  Company Number: BR-ROCHE-1443340

PATIENT
  Sex: Female
  Weight: 53 kg

DRUGS (2)
  1. ACTEMRA [Suspect]
     Active Substance: TOCILIZUMAB
     Route: 042
     Dates: start: 20140625
  2. ACTEMRA [Suspect]
     Active Substance: TOCILIZUMAB
     Indication: RHEUMATOID ARTHRITIS
     Dosage: MOST RECENT DOSE PRIOR TO ONSET OF CATARACT WORSENING WAS ON 25/JUN/2014.?MOST RECENT DOSE PRIOR TO
     Route: 042
     Dates: start: 20140528

REACTIONS (5)
  - Back injury [Not Recovered/Not Resolved]
  - Fall [Unknown]
  - Gait disturbance [Recovered/Resolved]
  - Cataract [Unknown]
  - Therapeutic response decreased [Unknown]
